FAERS Safety Report 5166527-2 (Version None)
Quarter: 2006Q4

REPORT INFORMATION
  Report Type: 
  Country: None (occurrence: None)
  Receive Date: 20061207
  Receipt Date: 20061127
  Transmission Date: 20070319
  Serious: Yes (Other)
  Sender: FDA-Public Use
  Company Number: PHNR2006AU01613

PATIENT
  Age: 64 Year
  Sex: Female

DRUGS (1)
  1. TEGRETOL [Suspect]
     Dosage: 200 MG, BID
     Route: 048
     Dates: start: 20061016, end: 20061113

REACTIONS (6)
  - COLD SWEAT [None]
  - CONVULSION [None]
  - NAUSEA [None]
  - PRURITUS GENERALISED [None]
  - SKIN REACTION [None]
  - VOMITING [None]
